FAERS Safety Report 5180228-6 (Version None)
Quarter: 2006Q4

REPORT INFORMATION
  Report Type: 
  Country: None (occurrence: None)
  Receive Date: 20061212
  Receipt Date: 20061129
  Transmission Date: 20070319
  Serious: Yes (Other)
  Sender: FDA-Public Use
  Company Number: GXKR2006TR07767

PATIENT
  Age: 30 Year
  Sex: Female

DRUGS (2)
  1. DOXYCYCLINE [Suspect]
     Indication: ACNE
     Dosage: 100 MG, QD
  2. TETRACYCLINE (NGX) (TETRACYCLINE HYDROCHLORIDE) UNKNOWN [Suspect]
     Indication: ACNE
     Dosage: 250 MG, QD

REACTIONS (2)
  - PIGMENTATION DISORDER [None]
  - SKIN DISCOLOURATION [None]
